FAERS Safety Report 9178100 (Version 1)
Quarter: 2013Q1

REPORT INFORMATION
  Report Type: Spontaneous
  Country: CO (occurrence: CO)
  Receive Date: 20130321
  Receipt Date: 20130321
  Transmission Date: 20140127
  Serious: Yes (Hospitalization)
  Sender: FDA-Public Use
  Company Number: CO-UCBSA-081054

PATIENT
  Age: 47 Year
  Sex: Female

DRUGS (6)
  1. CIMZIA [Suspect]
     Indication: RHEUMATOID ARTHRITIS
     Dosage: 1200 MG/4 WEEKS
     Route: 058
     Dates: start: 20121204, end: 20130121
  2. ENALAPRIL [Concomitant]
     Dosage: 10 MG
  3. METOPROLOL [Concomitant]
     Dosage: 50 MG
  4. INSULINA [Concomitant]
     Dosage: 10 UI
  5. PREDNISOLONA [Concomitant]
     Dosage: 2.5 MG
  6. METHOTREXATE [Concomitant]
     Dosage: 36 MG

REACTIONS (2)
  - Pneumonia [Unknown]
  - Overdose [Unknown]
